FAERS Safety Report 13130337 (Version 1)
Quarter: 2017Q1

REPORT INFORMATION
  Report Type: Spontaneous
  Country: US (occurrence: US)
  Receive Date: 20170119
  Receipt Date: 20170119
  Transmission Date: 20170428
  Serious: Yes (Death, Hospitalization)
  Sender: FDA-Public Use
  Company Number: US-TARO PHARMACEUTICALS USA.,INC-2017SUN00012

PATIENT
  Age: 4 Day
  Sex: Male

DRUGS (5)
  1. ESCITALOPRAM [Suspect]
     Active Substance: ESCITALOPRAM OXALATE
     Indication: DEPRESSION
     Dosage: UNK
     Route: 064
  2. ONDANSETRON HYDROCHLORIDE. [Suspect]
     Active Substance: ONDANSETRON HYDROCHLORIDE
     Indication: VOMITING
     Dosage: UNK
     Route: 064
  3. PROGESTERONE. [Suspect]
     Active Substance: PROGESTERONE
     Indication: PROPHYLAXIS
  4. PROGESTERONE. [Suspect]
     Active Substance: PROGESTERONE
     Indication: ABORTION THREATENED
     Dosage: UNK
     Route: 064
  5. SERTRALINE [Suspect]
     Active Substance: SERTRALINE HYDROCHLORIDE
     Indication: DEPRESSION
     Dosage: UNK
     Route: 064

REACTIONS (6)
  - Multiple organ dysfunction syndrome [Fatal]
  - Cardiac failure [Not Recovered/Not Resolved]
  - Foetal exposure during pregnancy [Unknown]
  - Drug hypersensitivity [Unknown]
  - Human herpesvirus 6 infection [Not Recovered/Not Resolved]
  - Congestive cardiomyopathy [Fatal]
